FAERS Safety Report 21047142 (Version 1)
Quarter: 2022Q3

REPORT INFORMATION
  Report Type: Spontaneous
  Country: US (occurrence: None)
  Receive Date: 20220705
  Receipt Date: 20220705
  Transmission Date: 20221027
  Serious: No
  Sender: FDA-Public Use
  Company Number: None

PATIENT
  Age: 73 Year
  Sex: Male
  Weight: 96.75 kg

DRUGS (3)
  1. PAXLOVID [Suspect]
     Active Substance: NIRMATRELVIR\RITONAVIR
     Indication: COVID-19
     Dates: start: 20220518, end: 20220523
  2. SIMVASTATIN [Concomitant]
     Active Substance: SIMVASTATIN
  3. BUDESONIDE [Concomitant]
     Active Substance: BUDESONIDE

REACTIONS (2)
  - Dysgeusia [None]
  - COVID-19 [None]

NARRATIVE: CASE EVENT DATE: 20220529
